FAERS Safety Report 11287420 (Version 2)
Quarter: 2015Q3

REPORT INFORMATION
  Report Type: Report from Study
  Country: NL (occurrence: NL)
  Receive Date: 20150721
  Receipt Date: 20150819
  Transmission Date: 20151125
  Serious: Yes (Hospitalization)
  Sender: FDA-Public Use
  Company Number: NL-AMGEN-NLDCT2015071860

PATIENT
  Age: 68 Year
  Sex: Female

DRUGS (3)
  1. GEMCITABINE [Concomitant]
     Active Substance: GEMCITABINE\GEMCITABINE HYDROCHLORIDE
     Indication: BLADDER CANCER
     Dosage: 1000 MG/M2, Q3WK
     Route: 042
     Dates: start: 20140827
  2. CISPLATIN. [Concomitant]
     Active Substance: CISPLATIN
     Indication: BLADDER CANCER
     Dosage: 5 AUC, Q3WK
     Route: 042
     Dates: start: 20140827
  3. PANITUMUMAB [Suspect]
     Active Substance: PANITUMUMAB
     Indication: BLADDER TRANSITIONAL CELL CARCINOMA
     Dosage: UNK, QWK
     Route: 042
     Dates: start: 20141201

REACTIONS (2)
  - Syncope [Not Recovered/Not Resolved]
  - Fatigue [Not Recovered/Not Resolved]

NARRATIVE: CASE EVENT DATE: 20141204
